FAERS Safety Report 17641020 (Version 1)
Quarter: 2020Q2

REPORT INFORMATION
  Report Type: Spontaneous
  Country: PL (occurrence: PL)
  Receive Date: 20200407
  Receipt Date: 20200407
  Transmission Date: 20200713
  Serious: Yes (Hospitalization)
  Sender: FDA-Public Use
  Company Number: PL-PFIZER INC-2020140748

PATIENT
  Age: 52 Year
  Sex: Female
  Weight: 48 kg

DRUGS (4)
  1. CAMPTO [Suspect]
     Active Substance: IRINOTECAN
     Dosage: UNK
  2. FLUOROURACIL MEDAC [Suspect]
     Active Substance: FLUOROURACIL
     Indication: PANCREATIC CARCINOMA
     Dosage: 3552 (DOSE UNIT NOT SPECIFIED)
     Route: 042
     Dates: start: 20190213, end: 20190214
  3. CAMPTO [Suspect]
     Active Substance: IRINOTECAN
     Dosage: 266 (DOSE UNIT NOT SPECIFIED)
     Route: 042
     Dates: start: 20190213, end: 20190214
  4. OXALIPLATIN ACCORD [Suspect]
     Active Substance: OXALIPLATIN
     Indication: PANCREATIC CARCINOMA
     Route: 042
     Dates: start: 20190213, end: 20190214

REACTIONS (3)
  - Nausea [Recovered/Resolved]
  - Vomiting [Recovered/Resolved]
  - Agranulocytosis [Unknown]

NARRATIVE: CASE EVENT DATE: 20190221
